FAERS Safety Report 13574270 (Version 1)
Quarter: 2017Q2

REPORT INFORMATION
  Report Type: Spontaneous
  Country: US (occurrence: US)
  Receive Date: 20170523
  Receipt Date: 20170523
  Transmission Date: 20170830
  Serious: No
  Sender: FDA-Public Use
  Company Number: US-KERYX BIOPHARMACEUTICALS, INC.-2017US002461

PATIENT
  Age: 78 Year
  Sex: Male

DRUGS (1)
  1. AURYXIA [Suspect]
     Active Substance: TETRAFERRIC TRICITRATE DECAHYDRATE
     Indication: HYPERPHOSPHATAEMIA
     Dosage: UNK
     Dates: start: 201612, end: 20170102

REACTIONS (2)
  - Constipation [Unknown]
  - Faeces discoloured [Unknown]

NARRATIVE: CASE EVENT DATE: 20170102
